FAERS Safety Report 5887696-2 (Version None)
Quarter: 2008Q3

REPORT INFORMATION
  Report Type: 
  Country: None (occurrence: None)
  Receive Date: 20080916
  Receipt Date: 20080916
  Transmission Date: 20090109
  Serious: Yes (Hospitalization)
  Sender: FDA-Public Use
  Company Number: None

PATIENT
  Age: 71 Year
  Sex: Female
  Weight: 65 kg

DRUGS (4)
  1. NADOLOL [Suspect]
     Indication: HYPERTENSION
     Dosage: 20MG DAILY PO  (DURATION: CHRONIC)
     Route: 048
  2. SYNTHROID [Concomitant]
  3. ASPIRIN [Concomitant]
  4. PLAVIX [Concomitant]

REACTIONS (1)
  - BRADYCARDIA [None]
